FAERS Safety Report 5731874-X (Version None)
Quarter: 2008Q2

REPORT INFORMATION
  Report Type: 
  Country: None (occurrence: None)
  Receive Date: 20080508
  Receipt Date: 20080428
  Transmission Date: 20081010
  Serious: Yes (Other)
  Sender: FDA-Public Use
  Company Number: US-WYE-H02802908

PATIENT
  Sex: Female

DRUGS (6)
  1. PREMPRO [Suspect]
  2. FEMHRT [Suspect]
  3. ESTRATAB [Suspect]
  4. COMBIPATCH [Suspect]
  5. CONJUGATED ESTROGENS [Suspect]
  6. MEDROXYPROGESTERONE ACETATE [Suspect]

REACTIONS (1)
  - BREAST CANCER METASTATIC [None]
